FAERS Safety Report 5794610-7 (Version None)
Quarter: 2008Q2

REPORT INFORMATION
  Report Type: 
  Country: None (occurrence: None)
  Receive Date: 20080627
  Receipt Date: 20080627
  Transmission Date: 20081010
  Serious: Yes (Hospitalization)
  Sender: FDA-Public Use
  Company Number: None

PATIENT
  Sex: Female
  Weight: 61.6892 kg

DRUGS (8)
  1. BACTRIM [Suspect]
     Indication: URINARY TRACT INFECTION
     Dosage: ONE TABLET PO  PT. HAD REACTION AFTER 1ST DOSE
     Route: 048
     Dates: start: 20071011
  2. PAROXETINE HCL [Concomitant]
  3. LIPITOR [Concomitant]
  4. TORSEMIDE [Concomitant]
  5. IMDUR [Concomitant]
  6. RANEXA [Concomitant]
  7. POTASSIUM CHLORIDE [Concomitant]
  8. TOPROL-XL [Concomitant]

REACTIONS (5)
  - DIZZINESS [None]
  - FALL [None]
  - LOSS OF CONSCIOUSNESS [None]
  - NAUSEA [None]
  - VOMITING [None]
